FAERS Safety Report 4453045-X (Version None)
Quarter: 2004Q3

REPORT INFORMATION
  Report Type: 
  Country: None (occurrence: None)
  Receive Date: 20040916
  Receipt Date: 20040916
  Transmission Date: 20050211
  Serious: Yes (Death)
  Sender: FDA-Public Use
  Company Number: None

PATIENT
  Age: 19 Year
  Sex: Female
  Weight: 55.3388 kg

DRUGS (1)
  1. PAXIL [Suspect]
     Dosage: DAILY

REACTIONS (1)
  - COMPLETED SUICIDE [None]
